FAERS Safety Report 8923023 (Version 1)
Quarter: 2012Q4

REPORT INFORMATION
  Report Type: 
  Country: IT (occurrence: IT)
  Receive Date: 20121123
  Receipt Date: 20121123
  Transmission Date: 20130627
  Serious: Yes (Hospitalization)
  Sender: FDA-Public Use
  Company Number: PHHY2012IT106499

PATIENT
  Age: 55 Year
  Sex: Male

DRUGS (1)
  1. ZOMETA [Suspect]
     Indication: METASTASES TO BONE
     Dosage: 4 mg, cyclic
     Route: 042
     Dates: start: 20120412, end: 20120905

REACTIONS (1)
  - Osteonecrosis of jaw [Recovered/Resolved]
